FAERS Safety Report 8209894-5 (Version None)
Quarter: 2012Q1

REPORT INFORMATION
  Report Type: 
  Country: None (occurrence: None)
  Receive Date: 20120314
  Receipt Date: 20120301
  Transmission Date: 20120608
  Serious: Yes (Other)
  Sender: FDA-Public Use
  Company Number: GB-ROCHE-1045086

PATIENT
  Sex: Female
  Weight: 48 kg

DRUGS (1)
  1. MABTHERA [Suspect]
     Indication: PRODUCT USED FOR UNKNOWN INDICATION
     Dosage: DATE OF LAST DOSE PRIOR TO SAE: 25/OCT/2011
     Dates: start: 20100115

REACTIONS (6)
  - SWELLING [None]
  - VOCAL CORD THICKENING [None]
  - ERUCTATION [None]
  - DYSPHONIA [None]
  - DYSPHAGIA [None]
  - UNEVALUABLE EVENT [None]
